FAERS Safety Report 7076968-4 (Version None)
Quarter: 2010Q4

REPORT INFORMATION
  Report Type: 
  Country: None (occurrence: None)
  Receive Date: 20101029
  Receipt Date: 20101029
  Transmission Date: 20110411
  Serious: No
  Sender: FDA-Public Use
  Company Number: None

PATIENT
  Age: 56 Year
  Sex: Male
  Weight: 72.6 kg

DRUGS (1)
  1. CIPROFLOXACIN [Suspect]
     Dosage: 500 MG BID PO
     Route: 048
     Dates: start: 20000101, end: 20000101

REACTIONS (1)
  - ANGIOEDEMA [None]
